FAERS Safety Report 7089490-6 (Version None)
Quarter: 2010Q4

REPORT INFORMATION
  Report Type: 
  Country: None (occurrence: None)
  Receive Date: 20101108
  Receipt Date: 20101105
  Transmission Date: 20110411
  Serious: Yes (Hospitalization)
  Sender: FDA-Public Use
  Company Number: EC-B.I. PHARMACEUTICALS,INC./RIDGEFIELD-2010-RA-00370RA

PATIENT
  Age: 78 Year
  Sex: Male

DRUGS (3)
  1. DABIGATRAN ETEXILATE [Suspect]
     Indication: THROMBOSIS PROPHYLAXIS
     Dosage: 110 MG
     Route: 048
     Dates: start: 20100901, end: 20101001
  2. ASPIRIN [Concomitant]
     Indication: PROPHYLAXIS
     Route: 048
     Dates: start: 20101001, end: 20101001
  3. CLEXANE [Concomitant]
     Indication: THROMBOSIS PROPHYLAXIS
     Dosage: 40 MG EVERY 12 HOURS
     Route: 058
     Dates: start: 20101001, end: 20101001

REACTIONS (2)
  - HAEMOLYSIS [None]
  - WOUND HAEMORRHAGE [None]
